FAERS Safety Report 12346206 (Version 3)
Quarter: 2016Q2

REPORT INFORMATION
  Report Type: Spontaneous
  Country: US (occurrence: US)
  Receive Date: 20160509
  Receipt Date: 20160519
  Transmission Date: 20160815
  Serious: Yes (Other)
  Sender: FDA-Public Use
  Company Number: US-PFIZER INC-2016227522

PATIENT
  Age: 50 Year
  Sex: Male
  Weight: 79 kg

DRUGS (2)
  1. LYRICA [Suspect]
     Active Substance: PREGABALIN
     Indication: FIBROMYALGIA
     Dosage: 450 MG, DAILY ( 3 DOSES OF 150 MG A DAY)
  2. AMRIX [Concomitant]
     Active Substance: CYCLOBENZAPRINE HYDROCHLORIDE
     Dosage: UNK

REACTIONS (2)
  - Accident [Unknown]
  - Spinal disorder [Unknown]

NARRATIVE: CASE EVENT DATE: 20150905
